FAERS Safety Report 5468881-0 (Version None)
Quarter: 2007Q3

REPORT INFORMATION
  Report Type: 
  Country: None (occurrence: None)
  Receive Date: 20070926
  Receipt Date: 20070917
  Transmission Date: 20080115
  Serious: Yes (Hospitalization)
  Sender: FDA-Public Use
  Company Number: ES-GENENTECH-248012

PATIENT
  Age: 39 Year
  Sex: Female

DRUGS (5)
  1. RITUXAN [Suspect]
     Indication: THROMBOTIC THROMBOCYTOPENIC PURPURA
     Dosage: 100 UNK, UNK
     Route: 042
     Dates: start: 20070712, end: 20070725
  2. VINCRISTINE [Suspect]
     Indication: THROMBOTIC THROMBOCYTOPENIC PURPURA
     Route: 042
     Dates: start: 20070712, end: 20070725
  3. LORAZEPAM [Suspect]
     Indication: INSOMNIA
     Dosage: 2 MG, UNK
     Route: 048
     Dates: start: 20070705, end: 20070725
  4. DIANE 35 [Concomitant]
     Indication: CONTRACEPTION
     Dosage: UNK TABLET, UNK
     Dates: start: 20000101, end: 20070528
  5. NEOGYNON [Concomitant]
     Indication: MENORRHAGIA
     Dosage: UNK TABLET, UNK
     Dates: start: 20070601, end: 20070601

REACTIONS (1)
  - STEVENS-JOHNSON SYNDROME [None]
